FAERS Safety Report 21986109 (Version 1)
Quarter: 2023Q1

REPORT INFORMATION
  Report Type: Spontaneous
  Country: US (occurrence: None)
  Receive Date: 20230212
  Receipt Date: 20230212
  Transmission Date: 20230418
  Serious: Yes (Other)
  Sender: FDA-Public Use
  Company Number: None

PATIENT
  Age: 58 Year
  Sex: Female

DRUGS (1)
  1. ARTIFICIAL TEARS LUBRICANT EYE DROPS (CARBOXYMETHYLCELLULOSE SODIUM) [Suspect]
     Active Substance: CARBOXYMETHYLCELLULOSE SODIUM
     Indication: Endocrine ophthalmopathy
     Dosage: OTHER QUANTITY : 30 DROP(S);?OTHER FREQUENCY : 6-7 TIMES DAILY;?
     Route: 047
     Dates: start: 20221109, end: 20230203

REACTIONS (3)
  - Vision blurred [None]
  - Lid sulcus deepened [None]
  - Recalled product [None]

NARRATIVE: CASE EVENT DATE: 20221116
